FAERS Safety Report 11895651 (Version 2)
Quarter: 2016Q1

REPORT INFORMATION
  Report Type: Report from Study
  Country: CA (occurrence: CA)
  Receive Date: 20160107
  Receipt Date: 20160205
  Transmission Date: 20160526
  Serious: Yes (Hospitalization, Other)
  Sender: FDA-Public Use
  Company Number: CA-KADMON PHARMACEUTICALS, LLC-KAD201601-000011

PATIENT
  Age: 60 Year
  Weight: 56.69 kg

DRUGS (6)
  1. CITALOPRAM [Concomitant]
     Active Substance: CITALOPRAM HYDROBROMIDE
  2. RIBAVIRIN. [Suspect]
     Active Substance: RIBAVIRIN
     Indication: HEPATITIS C
     Dosage: TABLET, MORNING 400 MG, EVENING 600 MG
     Route: 048
     Dates: start: 20151222, end: 20151231
  3. HOLKIRA PAK [Suspect]
     Active Substance: DASABUVIR\OMBITASVIR\PARITAPREVIR\RITONAVIR
     Indication: HEPATITIS C
     Dosage: TWO - 12.5/75/50 MG TABLETS QD AND ONE - 250 MG TABLET BID
     Route: 048
     Dates: start: 20151222, end: 20151231
  4. OXAZEPAM. [Concomitant]
     Active Substance: OXAZEPAM
     Indication: ANXIETY
  5. ADALAT [Concomitant]
     Active Substance: NIFEDIPINE
  6. CLONAZEPAM. [Concomitant]
     Active Substance: CLONAZEPAM

REACTIONS (9)
  - Blood glucose increased [Unknown]
  - Pneumonia [Unknown]
  - Ventricular dysfunction [Unknown]
  - Cardiac failure [Unknown]
  - Hypokalaemia [Unknown]
  - Oxygen saturation decreased [Unknown]
  - Anxiety [Unknown]
  - Pulmonary oedema [Recovered/Resolved]
  - Acute respiratory distress syndrome [Recovered/Resolved]

NARRATIVE: CASE EVENT DATE: 20151230
